FAERS Safety Report 8710168 (Version 3)
Quarter: 2013Q2

REPORT INFORMATION
  Report Type: Report from Study
  Country: JP (occurrence: JP)
  Receive Date: 20120806
  Receipt Date: 20130417
  Transmission Date: 20140414
  Serious: Yes (Other)
  Sender: FDA-Public Use
  Company Number: JP-009507513-1205USA04618

PATIENT
  Age: 69 Year
  Sex: Male
  Weight: 60.2 kg

DRUGS (5)
  1. GLACTIV [Suspect]
     Indication: TYPE 2 DIABETES MELLITUS
     Dosage: 50 MG, QD
     Route: 048
     Dates: start: 20110322
  2. LOCHOL (FLUVASTATIN SODIUM) [Concomitant]
  3. LASIX (FUROSEMIDE) [Concomitant]
  4. AMARYL [Concomitant]
     Dates: start: 20111122
  5. PREDONINE [Concomitant]

REACTIONS (1)
  - Blood glucose increased [Not Recovered/Not Resolved]
